FAERS Safety Report 21185376 (Version 1)
Quarter: 2022Q3

REPORT INFORMATION
  Report Type: Spontaneous
  Country: JP (occurrence: JP)
  Receive Date: 20220808
  Receipt Date: 20220808
  Transmission Date: 20221027
  Serious: Yes (Life-Threatening, Hospitalization, Other)
  Sender: FDA-Public Use
  Company Number: JP-GSKNCCC-Case-01536361_AE-60282

PATIENT

DRUGS (11)
  1. VALTREX [Suspect]
     Active Substance: VALACYCLOVIR HYDROCHLORIDE
     Indication: Herpes zoster
     Dosage: 1000 MG, TID
     Dates: start: 20220713, end: 20220715
  2. DICLOFENAC SODIUM [Suspect]
     Active Substance: DICLOFENAC SODIUM
     Dosage: UNK, BID, AFTER BREAKFAST AND DINNER
  3. REBAMIPIDE [Suspect]
     Active Substance: REBAMIPIDE
     Dosage: UNK, BID, AFTER BREAKFAST AND DINNER
  4. PIOGLITAZONE [Concomitant]
     Active Substance: PIOGLITAZONE
     Dosage: UNK, QD, AFTER BREAKFAST
     Route: 048
  5. ASPIRIN [Concomitant]
     Active Substance: ASPIRIN
     Dosage: UNK, QD, AFTER BREAKFAST
     Route: 048
  6. FEBUXOSTAT [Concomitant]
     Active Substance: FEBUXOSTAT
     Dosage: UNK, QD, AFTER DINNER
     Route: 048
  7. ELDECALCITOL CAPSULES [Concomitant]
     Dosage: UNK, QD, AFTER DINNER
     Route: 048
  8. ATORVASTATIN CALCIUM [Concomitant]
     Active Substance: ATORVASTATIN CALCIUM
     Dosage: UNK, QD, AFTER BREAKFAST
     Route: 048
  9. METHYLCOBALAMIN [Concomitant]
     Active Substance: METHYLCOBALAMIN
     Dosage: UNK, TID
     Route: 048
  10. LOXOPROFEN NA TAPE [Concomitant]
     Dosage: UNK, QD, APPLICATION, SHOULDER
  11. PREGABALIN [Concomitant]
     Active Substance: PREGABALIN
     Dosage: UNK, QD, BEFORE BEDTIME
     Route: 048

REACTIONS (1)
  - Toxic encephalopathy [Recovering/Resolving]

NARRATIVE: CASE EVENT DATE: 20220715
